FAERS Safety Report 20563244 (Version 1)
Quarter: 2022Q1

REPORT INFORMATION
  Report Type: Spontaneous
  Country: FR (occurrence: FR)
  Receive Date: 20220308
  Receipt Date: 20220308
  Transmission Date: 20220423
  Serious: Yes (Congenital Anomaly, Other)
  Sender: FDA-Public Use
  Company Number: FR-ABBVIE-22K-056-4300866-00

PATIENT
  Sex: Female

DRUGS (1)
  1. VALPROATE SODIUM [Suspect]
     Active Substance: VALPROATE SODIUM
     Indication: Maternal exposure timing unspecified
     Route: 064

REACTIONS (9)
  - Osteonecrosis [Not Recovered/Not Resolved]
  - Ventricular septal defect [Not Recovered/Not Resolved]
  - Myopia [Not Recovered/Not Resolved]
  - Aortic valve incompetence [Not Recovered/Not Resolved]
  - Arrhythmia supraventricular [Not Recovered/Not Resolved]
  - Bicuspid aortic valve [Not Recovered/Not Resolved]
  - Arteriovenous fistula [Not Recovered/Not Resolved]
  - Subvalvular aortic stenosis [Not Recovered/Not Resolved]
  - Foetal exposure during pregnancy [Unknown]
